FAERS Safety Report 23800481 (Version 1)
Quarter: 2024Q2

REPORT INFORMATION
  Report Type: Spontaneous
  Country: FR (occurrence: None)
  Receive Date: 20240430
  Receipt Date: 20240430
  Transmission Date: 20240716
  Serious: Yes (Life-Threatening, Hospitalization)
  Sender: FDA-Public Use
  Company Number: 2024A102069

PATIENT
  Age: 73 Year
  Sex: Female
  Weight: 98 kg

DRUGS (11)
  1. OMEPRAZOLE [Suspect]
     Active Substance: DONEPEZIL HYDROCHLORIDE\OMEPRAZOLE\OMEPRAZOLE MAGNESIUM
     Indication: Product used for unknown indication
     Dosage: SINCE AT LEAST 2012
     Route: 048
     Dates: start: 2012, end: 20240301
  2. NOVATREX (METHOTREXATE) [Suspect]
     Active Substance: METHOTREXATE SODIUM
     Indication: Rheumatoid arthritis
     Route: 048
     Dates: start: 20010615, end: 20240301
  3. LYRICA [Suspect]
     Active Substance: PREGABALIN
     Indication: Product used for unknown indication
     Dosage: BETWEEN 2013 AND 2017
     Route: 048
     Dates: end: 20240301
  4. FOLIC ACID [Suspect]
     Active Substance: FOLIC ACID
     Indication: Vitamin supplementation
     Dosage: SINCE 2001
     Route: 048
     Dates: start: 20010615, end: 20240301
  5. ADALIMUMAB [Suspect]
     Active Substance: ADALIMUMAB\ISOPROPYL ALCOHOL
     Indication: Rheumatoid arthritis
     Dosage: PREVIOUSLY TREATED WITH THE ORIGINATOR DRUG HUMIRA INTRODUCED IN AUGUST 2003), INTERRUPTED BETWEE...
     Route: 058
     Dates: start: 20190315, end: 20240301
  6. SPIRONOLACTONE [Suspect]
     Active Substance: SPIRONOLACTONE
     Indication: Hypertension
     Dosage: SINCE AT LEAST 2012
     Route: 048
     Dates: start: 2012, end: 20240301
  7. LERCANIDIPINE HYDROCHLORIDE [Concomitant]
     Active Substance: LERCANIDIPINE HYDROCHLORIDE
     Dosage: INTRODUCED BETWEEN 2017 AND 2020
  8. POTASSIUM CHLORIDE [Concomitant]
     Active Substance: POTASSIUM CHLORIDE
     Dosage: INTRODUCED BETWEEN NOVEMBER 2022 AND JANUARY 2024
  9. URAPIDIL [Concomitant]
     Active Substance: URAPIDIL
     Dosage: INTRODUCED BETWEEN NOVEMBER 2022 AND JANUARY 2024
  10. FUROSEMIDE [Concomitant]
     Active Substance: FUROSEMIDE
     Dosage: INTRODUCED BETWEEN 2017 AND 2020
  11. SPIRIVA [Concomitant]
     Active Substance: TIOTROPIUM BROMIDE MONOHYDRATE
     Dosage: SINCE AT LEAST 2013

REACTIONS (7)
  - Septic shock [Recovered/Resolved]
  - Acute kidney injury [Recovered/Resolved]
  - Pneumonia staphylococcal [Recovering/Resolving]
  - Stress cardiomyopathy [Recovered/Resolved]
  - Rhabdomyolysis [Recovered/Resolved]
  - Fall [Recovered/Resolved]
  - Purpura [Recovered/Resolved]

NARRATIVE: CASE EVENT DATE: 20240229
